FAERS Safety Report 5840181-6 (Version None)
Quarter: 2008Q3

REPORT INFORMATION
  Report Type: 
  Country: None (occurrence: None)
  Receive Date: 20080730
  Receipt Date: 20080528
  Transmission Date: 20090109
  Serious: No
  Sender: FDA-Public Use
  Company Number: PHEH2008US04045

PATIENT
  Sex: Male
  Weight: 73.9 kg

DRUGS (1)
  1. TEKTURNA [Suspect]
     Indication: HYPERTENSION
     Dosage: 150 MG, QD
     Dates: start: 20061031, end: 20080413

REACTIONS (11)
  - ABDOMINAL PAIN UPPER [None]
  - ARTHRALGIA [None]
  - CHEST PAIN [None]
  - COUGH [None]
  - EJACULATION DISORDER [None]
  - FLATULENCE [None]
  - OESOPHAGEAL PAIN [None]
  - PROSTATE TENDERNESS [None]
  - PROSTATIC DISORDER [None]
  - RENAL PAIN [None]
  - SEXUAL DYSFUNCTION [None]
